FAERS Safety Report 25479541 (Version 1)
Quarter: 2025Q2

REPORT INFORMATION
  Report Type: Report from Study
  Country: US (occurrence: US)
  Receive Date: 20250625
  Receipt Date: 20250625
  Transmission Date: 20250716
  Serious: Yes (Other)
  Sender: NOVARTIS
  Company Number: US-002147023-NVSC2025US101124

PATIENT
  Age: 42 Year
  Sex: Female

DRUGS (1)
  1. KESIMPTA [Suspect]
     Active Substance: OFATUMUMAB
     Indication: Product used for unknown indication
     Dosage: 20 MG, QMO
     Route: 058
     Dates: start: 20250617

REACTIONS (9)
  - Fibromyalgia [Unknown]
  - Pain [Recovered/Resolved]
  - Stress [Recovered/Resolved]
  - Myalgia [Recovered/Resolved]
  - Back pain [Unknown]
  - Pain in extremity [Unknown]
  - Insomnia [Recovered/Resolved]
  - Pain [Recovered/Resolved]
  - Headache [Unknown]

NARRATIVE: CASE EVENT DATE: 20250617
